FAERS Safety Report 22012697 (Version 1)
Quarter: 2023Q1

REPORT INFORMATION
  Report Type: Spontaneous
  Country: PL (occurrence: PL)
  Receive Date: 20230220
  Receipt Date: 20230220
  Transmission Date: 20230418
  Serious: Yes (Life-Threatening, Hospitalization, Other)
  Sender: FDA-Public Use
  Company Number: PL-INSUD PHARMA-2302PL00788

PATIENT

DRUGS (7)
  1. TESTOSTERONE [Suspect]
     Active Substance: TESTOSTERONE
     Indication: Muscle building therapy
     Dosage: SELF-ADMINISTERED, CYCLES OF 10 WEEKS, 4-WEEK INTERVAL BETWEEN CYCLES
     Route: 065
  2. TESTOSTERONE ENANTHATE [Suspect]
     Active Substance: TESTOSTERONE ENANTHATE
     Indication: Muscle building therapy
     Dosage: SELF-ADMINISTERED, CYCLES OF 10 WEEKS, 4-WEEK INTERVAL BETWEEN CYCLES
     Route: 065
  3. TESTOSTERONE PROPIONATE [Suspect]
     Active Substance: TESTOSTERONE PROPIONATE
     Indication: Muscle building therapy
     Dosage: SELF-ADMINISTERED, CYCLES OF 10 WEEKS, 4-WEEK INTERVAL BETWEEN CYCLES
     Route: 065
  4. UNSPECIFIED INGREDIENT [Suspect]
     Active Substance: UNSPECIFIED INGREDIENT
     Indication: Muscle building therapy
     Dosage: SELF-ADMINISTERED, CYCLES OF 10 WEEKS, 4-WEEK INTERVAL BETWEEN CYCLES
     Route: 065
  5. STANOZOLOL [Suspect]
     Active Substance: STANOZOLOL
     Indication: Muscle building therapy
     Dosage: SELF-ADMINISTERED, CYCLES OF 10 WEEKS, 4-WEEK INTERVAL BETWEEN CYCLES
     Route: 065
  6. TRENBOLONE ENANTHATE [Suspect]
     Active Substance: TRENBOLONE ENANTHATE
     Indication: Muscle building therapy
     Dosage: SELF-ADMINISTERED, CYCLES OF 10 WEEKS, 4-WEEK INTERVAL BETWEEN CYCLES
     Route: 065
  7. METHANDROSTENOLONE [Suspect]
     Active Substance: METHANDROSTENOLONE
     Indication: Muscle building therapy
     Dosage: SELF-ADMINISTERED, CYCLES OF 10 WEEKS, 4-WEEK INTERVAL BETWEEN CYCLES
     Route: 065

REACTIONS (9)
  - Cardiac failure chronic [Recovering/Resolving]
  - Hepatitis toxic [Recovering/Resolving]
  - Dyspnoea exertional [Recovering/Resolving]
  - Pulmonary congestion [Recovering/Resolving]
  - Dyspnoea at rest [Recovering/Resolving]
  - Oedema peripheral [Recovering/Resolving]
  - Jaundice [Recovering/Resolving]
  - Hepatic function abnormal [Recovering/Resolving]
  - Drug abuse [Recovering/Resolving]
